FAERS Safety Report 7627356-0 (Version None)
Quarter: 2011Q3

REPORT INFORMATION
  Report Type: 
  Country: None (occurrence: None)
  Receive Date: 20110721
  Receipt Date: 20110708
  Transmission Date: 20111222
  Serious: No
  Sender: FDA-Public Use
  Company Number: US-ELI_LILLY_AND_COMPANY-US201102003187

PATIENT
  Sex: Female

DRUGS (22)
  1. FORTEO [Suspect]
     Indication: OSTEOPOROSIS
     Dosage: 20 UG, DAILY (1/D)
     Dates: start: 20101015
  2. ORPHENADRINE CITRATE [Concomitant]
  3. FORTEO [Suspect]
     Dosage: 20 UG, QD
  4. PROAIR HFA [Concomitant]
  5. CALTRATE D                         /00944201/ [Concomitant]
  6. NEXIUM [Concomitant]
  7. LIDODERM [Concomitant]
  8. PATADAY [Concomitant]
     Indication: EYE DISORDER
  9. BENADRYL [Concomitant]
  10. PRAZOSIN HCL [Concomitant]
  11. CENTRUM SILVER [Concomitant]
  12. TYLENOL (CAPLET) [Concomitant]
  13. SALSALATE [Concomitant]
  14. FLOVENT HFA [Concomitant]
  15. ZYRTEC [Concomitant]
  16. FISH OIL [Concomitant]
  17. FORTEO [Suspect]
     Dosage: 20 UG, DAILY (1/D)
  18. LIPITOR [Concomitant]
  19. METOPROLOL TARTRATE [Concomitant]
  20. LUMIGAN [Concomitant]
     Indication: EYE DISORDER
  21. FOLIC ACID [Concomitant]
  22. VITAMIN D [Concomitant]

REACTIONS (4)
  - BACK PAIN [None]
  - CRYING [None]
  - FALL [None]
  - PAIN IN EXTREMITY [None]
